FAERS Safety Report 4660047-7 (Version None)
Quarter: 2005Q2

REPORT INFORMATION
  Report Type: 
  Country: None (occurrence: None)
  Receive Date: 20050512
  Receipt Date: 20050506
  Transmission Date: 20051028
  Serious: Yes (Death)
  Sender: FDA-Public Use
  Company Number: PHHO2005ES07265

PATIENT
  Age: 71 Year
  Sex: Male

DRUGS (2)
  1. STEROIDS NOS [Concomitant]
     Indication: RENAL TRANSPLANT
     Dosage: 10 MG
  2. NEORAL [Suspect]
     Indication: RENAL TRANSPLANT
     Dosage: 150 MG
     Dates: start: 19980225, end: 20021102

REACTIONS (1)
  - CEREBROVASCULAR DISORDER [None]
